FAERS Safety Report 17741046 (Version 1)
Quarter: 2020Q2

REPORT INFORMATION
  Report Type: Report from Study
  Country: BR (occurrence: BR)
  Receive Date: 20200504
  Receipt Date: 20200504
  Transmission Date: 20200714
  Serious: Yes (Other)
  Sender: FDA-Public Use
  Company Number: NVSC2020BR119094

PATIENT
  Age: 72 Year
  Sex: Female

DRUGS (1)
  1. DIOVAN HCT [Suspect]
     Active Substance: HYDROCHLOROTHIAZIDE\VALSARTAN
     Indication: BLOOD PRESSURE ABNORMAL
     Dosage: UNK (160 MG+12.5 AS REPORTED, START: MORE THAN 10 YEARS)
     Route: 065

REACTIONS (12)
  - Breast cyst [Unknown]
  - Breast mass [Unknown]
  - Confusional state [Unknown]
  - Breast cancer [Recovered/Resolved]
  - Eating disorder [Unknown]
  - Muscle injury [Recovered/Resolved]
  - Accident [Recovered/Resolved]
  - Feeling abnormal [Unknown]
  - Limb injury [Recovered/Resolved]
  - Chest injury [Recovered/Resolved]
  - Intervertebral disc protrusion [Recovered/Resolved]
  - Nausea [Recovered/Resolved]

NARRATIVE: CASE EVENT DATE: 2015
